FAERS Safety Report 7267746-1 (Version None)
Quarter: 2011Q1

REPORT INFORMATION
  Report Type: 
  Country: None (occurrence: None)
  Receive Date: 20110201
  Receipt Date: 20110125
  Transmission Date: 20110831
  Serious: Yes (Death, Other)
  Sender: FDA-Public Use
  Company Number: NO-ROCHE-755598

PATIENT
  Age: 40 Year
  Sex: Male

DRUGS (2)
  1. AVASTIN [Suspect]
     Indication: METASTATIC RENAL CELL CARCINOMA
     Route: 065
     Dates: start: 20090901
  2. ROCERON [Suspect]
     Indication: METASTATIC RENAL CELL CARCINOMA
     Dosage: DOSE: 9 MILL IU
     Route: 065
     Dates: start: 20090901

REACTIONS (5)
  - HAEMOPTYSIS [None]
  - PNEUMONIA [None]
  - PYREXIA [None]
  - SLEEP DISORDER [None]
  - HEADACHE [None]
